FAERS Safety Report 21586935 (Version 1)
Quarter: 2022Q4

REPORT INFORMATION
  Report Type: Spontaneous
  Country: US (occurrence: None)
  Receive Date: 20221110
  Receipt Date: 20221110
  Transmission Date: 20230112
  Serious: Yes (Other)
  Sender: FDA-Public Use
  Company Number: None

PATIENT
  Age: 71 Year
  Sex: Male

DRUGS (1)
  1. LENALIDOMIDE [Suspect]
     Active Substance: LENALIDOMIDE
     Indication: Diffuse large B-cell lymphoma
     Dosage: 2.5MG QD ORAL?
     Route: 048
     Dates: start: 20220428

REACTIONS (3)
  - Lip swelling [None]
  - Therapy interrupted [None]
  - Product substitution issue [None]

NARRATIVE: CASE EVENT DATE: 20221014
